FAERS Safety Report 5072809-5 (Version None)
Quarter: 2006Q3

REPORT INFORMATION
  Report Type: 
  Country: None (occurrence: None)
  Receive Date: 20060802
  Receipt Date: 20060727
  Transmission Date: 20061208
  Serious: Yes (Hospitalization)
  Sender: FDA-Public Use
  Company Number: GXKR2006DE04267

PATIENT
  Sex: Male

DRUGS (2)
  1. IBUHEXAL                       FILM-COATED [Suspect]
     Dosage: ORAL
     Route: 048
  2. FURORESE (NGX)(FUROSEMIDE) TABLET, 40MG [Suspect]
     Dosage: ORAL
     Route: 048

REACTIONS (1)
  - EPIDERMOLYSIS BULLOSA [None]
